FAERS Safety Report 9595001 (Version 2)
Quarter: 2013Q4

REPORT INFORMATION
  Report Type: Spontaneous
  Country: FR (occurrence: FR)
  Receive Date: 20131004
  Receipt Date: 20131021
  Transmission Date: 20140711
  Serious: Yes (Other)
  Sender: FDA-Public Use
  Company Number: FR-JNJFOC-20130917123

PATIENT
  Age: 53 Year
  Sex: Male
  Weight: 70 kg

DRUGS (2)
  1. STELARA [Suspect]
     Indication: PSORIASIS
     Dosage: HAD ALREADY RECEIVED 3 INJECTIONS
     Route: 058
     Dates: start: 20130124
  2. FLECAINE [Concomitant]
     Indication: ATRIAL FIBRILLATION
     Route: 065
     Dates: start: 2012

REACTIONS (1)
  - Superficial spreading melanoma stage unspecified [Recovered/Resolved with Sequelae]
